FAERS Safety Report 9583250 (Version 1)
Quarter: 2013Q4

REPORT INFORMATION
  Report Type: Spontaneous
  Country: US (occurrence: US)
  Receive Date: 20131002
  Receipt Date: 20131002
  Transmission Date: 20140711
  Serious: No
  Sender: FDA-Public Use
  Company Number: US-AMGEN-USASP2013045545

PATIENT
  Age: 45 Year
  Sex: Female

DRUGS (10)
  1. ENBREL [Suspect]
     Indication: PRODUCT USED FOR UNKNOWN INDICATION
     Dosage: 50 MG, QWK
     Route: 058
     Dates: start: 200911, end: 201011
  2. PROTONIX [Concomitant]
     Dosage: 20 MG, UNK
  3. XANAX [Concomitant]
     Dosage: 0.25 MG, UNK
  4. MS CONTIN [Concomitant]
     Dosage: 200 MG, UNK
  5. LIPITOR [Concomitant]
     Dosage: 10 MG, UNK
  6. NEURONTIN [Concomitant]
     Dosage: 100 MG, UNK
  7. SYNTHROID [Concomitant]
     Dosage: 200 MUG, UNK
  8. FOLIC ACID [Concomitant]
     Dosage: UNK
  9. CORGARD [Concomitant]
     Dosage: 40 MG, UNK
  10. METHOTREXATE [Concomitant]
     Dosage: 25 MG, UNK

REACTIONS (3)
  - Drug ineffective [Unknown]
  - Sinusitis [Unknown]
  - Upper respiratory tract infection [Unknown]
